FAERS Safety Report 9157864 (Version 1)
Quarter: 2013Q1

REPORT INFORMATION
  Report Type: Spontaneous
  Country: US (occurrence: None)
  Receive Date: 20130212
  Receipt Date: 20130212
  Transmission Date: 20140127
  Serious: Yes (Other)
  Sender: FDA-Public Use
  Company Number: B0864636A

PATIENT
  Age: 3 Year
  Sex: Male

DRUGS (1)
  1. FLUTICASONE PROPIONATE [Suspect]
     Indication: ASTHMA
     Dosage: 2 PUFF (S) / TWICE PER DAY / UNKNOWN

REACTIONS (1)
  - Adrenal insufficiency [None]
